FAERS Safety Report 6259408-4 (Version None)
Quarter: 2009Q2

REPORT INFORMATION
  Report Type: 
  Country: None (occurrence: None)
  Receive Date: 20090625
  Receipt Date: 20090614
  Transmission Date: 20091009
  Serious: Yes (Life-Threatening)
  Sender: FDA-Public Use
  Company Number: AEUSA200900181

PATIENT
  Age: 48 Year
  Sex: Female

DRUGS (1)
  1. PROLASTIN [Suspect]
     Indication: ALPHA-1 ANTI-TRYPSIN DEFICIENCY
     Dosage: 5000 MG; IV
     Route: 042
     Dates: start: 19990101

REACTIONS (2)
  - DRUG HYPERSENSITIVITY [None]
  - INJECTION SITE EXTRAVASATION [None]
